FAERS Safety Report 7287540-5 (Version None)
Quarter: 2011Q1

REPORT INFORMATION
  Report Type: 
  Country: None (occurrence: None)
  Receive Date: 20110211
  Receipt Date: 20110201
  Transmission Date: 20110831
  Serious: Yes (Other)
  Sender: FDA-Public Use
  Company Number: JP-JNJFOC-20110105645

PATIENT
  Age: 63 Year
  Sex: Female
  Weight: 43 kg

DRUGS (5)
  1. REMICADE [Suspect]
     Route: 042
  2. UNKNOWN ADRENAL HORMONE PREPARATIONS [Concomitant]
     Route: 048
  3. REMICADE [Suspect]
     Indication: COLITIS ULCERATIVE
     Route: 042
  4. REMICADE [Suspect]
     Route: 042
  5. REMICADE [Suspect]
     Route: 042

REACTIONS (1)
  - UPPER RESPIRATORY TRACT INFLAMMATION [None]
